FAERS Safety Report 25542301 (Version 3)
Quarter: 2025Q3

REPORT INFORMATION
  Report Type: Report from Study
  Country: US (occurrence: US)
  Receive Date: 20250711
  Receipt Date: 20250725
  Transmission Date: 20251021
  Serious: Yes (Hospitalization, Other)
  Sender: UNITED THERAPEUTICS
  Company Number: US-UNITED THERAPEUTICS-UNT-2025-014467

PATIENT
  Sex: Male

DRUGS (8)
  1. TREPROSTINIL SODIUM [Suspect]
     Active Substance: TREPROSTINIL SODIUM
     Indication: Pulmonary arterial hypertension
     Route: 041
  2. TREPROSTINIL SODIUM [Suspect]
     Active Substance: TREPROSTINIL SODIUM
     Route: 041
  3. TREPROSTINIL SODIUM [Suspect]
     Active Substance: TREPROSTINIL SODIUM
     Route: 041
  4. TREPROSTINIL SODIUM [Suspect]
     Active Substance: TREPROSTINIL SODIUM
     Route: 041
  5. TREPROSTINIL SODIUM [Suspect]
     Active Substance: TREPROSTINIL SODIUM
     Route: 041
  6. TREPROSTINIL SODIUM [Suspect]
     Active Substance: TREPROSTINIL SODIUM
     Route: 041
  7. UPTRAVI [Suspect]
     Active Substance: SELEXIPAG
     Indication: Pulmonary arterial hypertension
  8. OPSUMIT [Concomitant]
     Active Substance: MACITENTAN
     Indication: Product used for unknown indication

REACTIONS (15)
  - Pulmonary arterial hypertension [Not Recovered/Not Resolved]
  - Syncope [Unknown]
  - Neuropathy peripheral [Unknown]
  - Oxygen saturation decreased [Unknown]
  - Dyspnoea exertional [Unknown]
  - Fatigue [Unknown]
  - Dizziness [Unknown]
  - Peripheral swelling [Unknown]
  - Pain in jaw [Not Recovered/Not Resolved]
  - Arthralgia [Unknown]
  - Pain in extremity [Unknown]
  - Headache [Not Recovered/Not Resolved]
  - Musculoskeletal stiffness [Unknown]
  - Dyspnoea [Not Recovered/Not Resolved]
  - Therapy non-responder [Unknown]

NARRATIVE: CASE EVENT DATE: 20250101
